FAERS Safety Report 7241126-7 (Version None)
Quarter: 2011Q1

REPORT INFORMATION
  Report Type: 
  Country: None (occurrence: None)
  Receive Date: 20110124
  Receipt Date: 20110118
  Transmission Date: 20110831
  Serious: Yes (Other)
  Sender: FDA-Public Use
  Company Number: CHPA2011US01249

PATIENT
  Age: 74 Year
  Sex: Female
  Weight: 49.887 kg

DRUGS (3)
  1. SOTALOL [Concomitant]
     Indication: HEART RATE IRREGULAR
  2. BENEFIBER UNKNOWN [Suspect]
     Indication: CONSTIPATION
     Dosage: 2 TSP, BID OR TID
     Route: 048
     Dates: start: 20101101
  3. CALCIUM [Concomitant]

REACTIONS (6)
  - DROOLING [None]
  - OFF LABEL USE [None]
  - CEREBROVASCULAR ACCIDENT [None]
  - HYPOAESTHESIA [None]
  - PARALYSIS [None]
  - GAIT DISTURBANCE [None]
